FAERS Safety Report 11283825 (Version 1)
Quarter: 2015Q3

REPORT INFORMATION
  Report Type: Spontaneous
  Country: US (occurrence: US)
  Receive Date: 20150720
  Receipt Date: 20150720
  Transmission Date: 20151125
  Serious: No
  Sender: FDA-Public Use
  Company Number: US-PFIZER INC-2015240753

PATIENT
  Age: 47 Year
  Sex: Female

DRUGS (1)
  1. NICOTINE. [Suspect]
     Active Substance: NICOTINE
     Dosage: UNK

REACTIONS (2)
  - Drug hypersensitivity [Unknown]
  - Rash [Unknown]
